FAERS Safety Report 19995140 (Version 4)
Quarter: 2022Q1

REPORT INFORMATION
  Report Type: Report from Study
  Country: TW (occurrence: TW)
  Receive Date: 20211025
  Receipt Date: 20220309
  Transmission Date: 20220423
  Serious: Yes (Hospitalization, Other)
  Sender: FDA-Public Use
  Company Number: TW-GLAXOSMITHKLINE-TW2021APC216791

PATIENT
  Age: 68 Year
  Sex: Male

DRUGS (1)
  1. MEPOLIZUMAB [Suspect]
     Active Substance: MEPOLIZUMAB
     Indication: Product used for unknown indication
     Dosage: UNK
     Dates: start: 20200817

REACTIONS (6)
  - Syncope [Recovered/Resolved]
  - Lung neoplasm [Unknown]
  - Lung adenocarcinoma [Unknown]
  - Asthenia [Unknown]
  - Dizziness [Unknown]
  - Initial insomnia [Unknown]

NARRATIVE: CASE EVENT DATE: 20220223
